FAERS Safety Report 16009330 (Version 2)
Quarter: 2019Q2

REPORT INFORMATION
  Report Type: Spontaneous
  Country: JP (occurrence: JP)
  Receive Date: 20190225
  Receipt Date: 20190624
  Transmission Date: 20190711
  Serious: Yes (Hospitalization, Other)
  Sender: FDA-Public Use
  Company Number: JP-SUN PHARMACEUTICAL INDUSTRIES LTD-2019R1-200022

PATIENT
  Sex: Male

DRUGS (3)
  1. TEGRETOL [Suspect]
     Active Substance: CARBAMAZEPINE
     Indication: EPILEPSY
     Dosage: 600 MILLIGRAM, DAILY
     Route: 048
     Dates: start: 200812
  2. VALPROIC ACID. [Suspect]
     Active Substance: VALPROIC ACID
     Indication: EPILEPSY
     Dosage: 1200 MILLIGRAM, DAILY
     Route: 048
  3. CLONAZEPAM. [Suspect]
     Active Substance: CLONAZEPAM
     Indication: EPILEPSY
     Dosage: 3 MILLIGRAM, DAILY
     Route: 065

REACTIONS (2)
  - Gait disturbance [Unknown]
  - Sinus node dysfunction [Recovering/Resolving]

NARRATIVE: CASE EVENT DATE: 200912
